FAERS Safety Report 15153056 (Version 1)
Quarter: 2018Q3

REPORT INFORMATION
  Report Type: Spontaneous
  Country: US (occurrence: US)
  Receive Date: 20180717
  Receipt Date: 20180717
  Transmission Date: 20181010
  Serious: No
  Sender: FDA-Public Use
  Company Number: US-PFIZER INC-2018286094

PATIENT
  Age: 74 Year
  Sex: Female

DRUGS (1)
  1. EUCRISA [Suspect]
     Active Substance: CRISABOROLE
     Dosage: UNK,(APPLY 1 APPLICATION EXTERNALLY TO AFFECTED AREA TWICE A DAY)
     Dates: start: 201805

REACTIONS (2)
  - Drug hypersensitivity [Unknown]
  - Burning sensation [Unknown]
